FAERS Safety Report 20528102 (Version 19)
Quarter: 2025Q2

REPORT INFORMATION
  Report Type: Report from Study
  Country: AU (occurrence: AU)
  Receive Date: 20220228
  Receipt Date: 20250402
  Transmission Date: 20250716
  Serious: Yes (Hospitalization, Other)
  Sender: TAKEDA
  Company Number: AU-TAKEDA-2022TUS013266

PATIENT
  Age: 23 Year
  Sex: Female

DRUGS (13)
  1. VEDOLIZUMAB [Suspect]
     Active Substance: VEDOLIZUMAB
     Indication: Crohn^s disease
  2. VEDOLIZUMAB [Suspect]
     Active Substance: VEDOLIZUMAB
     Dosage: 300 MILLIGRAM, Q4WEEKS
  3. VEDOLIZUMAB [Suspect]
     Active Substance: VEDOLIZUMAB
     Dosage: 300 MILLIGRAM, Q4WEEKS
  4. VEDOLIZUMAB [Suspect]
     Active Substance: VEDOLIZUMAB
     Dosage: 300 MILLIGRAM, Q4WEEKS
  5. VEDOLIZUMAB [Suspect]
     Active Substance: VEDOLIZUMAB
     Dosage: 300 MILLIGRAM, Q4WEEKS
  6. VEDOLIZUMAB [Suspect]
     Active Substance: VEDOLIZUMAB
     Dosage: 300 MILLIGRAM, Q4WEEKS
  7. VEDOLIZUMAB [Suspect]
     Active Substance: VEDOLIZUMAB
     Dosage: 300 MILLIGRAM, Q4WEEKS
  8. VEDOLIZUMAB [Suspect]
     Active Substance: VEDOLIZUMAB
     Dosage: 300 MILLIGRAM, Q4WEEKS
  9. VEDOLIZUMAB [Suspect]
     Active Substance: VEDOLIZUMAB
     Dosage: 300 MILLIGRAM, Q4WEEKS
  10. CIPROFLOXACIN [Concomitant]
     Active Substance: CIPROFLOXACIN
  11. CIPROFLOXACIN [Concomitant]
     Active Substance: CIPROFLOXACIN
  12. LINCOMYCIN [Concomitant]
     Active Substance: LINCOMYCIN
  13. FLAGYL [Concomitant]
     Active Substance: METRONIDAZOLE\METRONIDAZOLE HYDROCHLORIDE

REACTIONS (20)
  - Appendicitis [Not Recovered/Not Resolved]
  - Abdominal pain lower [Not Recovered/Not Resolved]
  - Herpes zoster [Recovered/Resolved]
  - Crohn^s disease [Recovered/Resolved]
  - Fistula [Recovered/Resolved]
  - Vertigo [Recovering/Resolving]
  - Asthma [Recovering/Resolving]
  - Diarrhoea [Unknown]
  - Inappropriate schedule of product administration [Recovered/Resolved]
  - Viral infection [Recovering/Resolving]
  - Blood pressure decreased [Not Recovered/Not Resolved]
  - Malaise [Unknown]
  - Dizziness [Recovering/Resolving]
  - Ear pain [Recovering/Resolving]
  - Headache [Recovering/Resolving]
  - Nausea [Recovering/Resolving]
  - Sinusitis [Recovering/Resolving]
  - Pyrexia [Recovered/Resolved]
  - Pregnancy [Recovered/Resolved]
  - Polyp [Recovered/Resolved]

NARRATIVE: CASE EVENT DATE: 20220218
